FAERS Safety Report 9652525 (Version 2)
Quarter: 2013Q4

REPORT INFORMATION
  Report Type: Spontaneous
  Country: BR (occurrence: BR)
  Receive Date: 20131029
  Receipt Date: 20131029
  Transmission Date: 20140711
  Serious: Yes (Other)
  Sender: FDA-Public Use
  Company Number: BR-ABBVIE-13P-020-1040007-00

PATIENT
  Age: 17 Year
  Sex: Male
  Weight: 81 kg

DRUGS (3)
  1. DEPAKENE [Suspect]
     Indication: CONVULSION PROPHYLAXIS
     Dosage: 1 IN MORNING AND 1 IN EVENING, BUT ALSO AS EVERY 8 HOURS
     Route: 048
     Dates: start: 201208
  2. IBUPROFEN [Concomitant]
     Indication: BACK PAIN
     Route: 048
     Dates: start: 20121226
  3. PARACETAMOL [Concomitant]
     Indication: HEADACHE
     Route: 048
     Dates: start: 20121226

REACTIONS (8)
  - Syncope [Not Recovered/Not Resolved]
  - Foreign body [Recovered/Resolved]
  - Drug ineffective [Not Recovered/Not Resolved]
  - Retching [Not Recovered/Not Resolved]
  - Dizziness [Not Recovered/Not Resolved]
  - Headache [Not Recovered/Not Resolved]
  - Eructation [Not Recovered/Not Resolved]
  - Nausea [Unknown]
